FAERS Safety Report 6983482-0 (Version None)
Quarter: 2010Q3

REPORT INFORMATION
  Report Type: 
  Country: None (occurrence: None)
  Receive Date: 20100914
  Receipt Date: 20080722
  Transmission Date: 20110219
  Serious: No
  Sender: FDA-Public Use
  Company Number: US-WYE-H04697508

PATIENT

DRUGS (1)
  1. ADVIL LIQUI-GELS [Suspect]
     Dosage: UNKNOWN
     Route: 048
     Dates: start: 20080601, end: 20080601

REACTIONS (2)
  - DRUG INEFFECTIVE [None]
  - PRODUCT QUALITY ISSUE [None]
